FAERS Safety Report 8980330 (Version 1)
Quarter: 2012Q4

REPORT INFORMATION
  Report Type: 
  Country: NL (occurrence: NL)
  Receive Date: 20121221
  Receipt Date: 20121221
  Transmission Date: 20130627
  Serious: Yes (Hospitalization)
  Sender: FDA-Public Use
  Company Number: PHHY2012NL115501

PATIENT
  Sex: Male

DRUGS (5)
  1. ZOMETA [Suspect]
     Indication: PROSTATE CANCER METASTATIC
     Dosage: 4 mg, per 100 ml per 42 days
     Route: 042
  2. ZOMETA [Suspect]
     Dosage: 4 mg, per 100 ml per 42 days
     Route: 042
     Dates: start: 20100402
  3. ZOMETA [Suspect]
     Dosage: 4 mg, per 100 ml per 42 days
     Route: 042
     Dates: start: 20121029
  4. ZOMETA [Suspect]
     Dosage: 4 mg, per 100 ml per 42 days
     Route: 042
     Dates: start: 20121210
  5. CHEMOTHERAPEUTICS [Suspect]
     Dosage: UNK UKN, UNK

REACTIONS (4)
  - Abscess jaw [Recovering/Resolving]
  - Infection [Recovered/Resolved]
  - Weight decreased [Unknown]
  - White blood cell count decreased [Unknown]
